FAERS Safety Report 9432833 (Version 1)
Quarter: 2013Q3

REPORT INFORMATION
  Report Type: Spontaneous
  Country: US (occurrence: US)
  Receive Date: 20130731
  Receipt Date: 20130731
  Transmission Date: 20140515
  Serious: Yes (Other)
  Sender: FDA-Public Use
  Company Number: US-UCBSA-092930

PATIENT
  Sex: Male
  Weight: 132 kg

DRUGS (10)
  1. CIMZIA [Suspect]
     Indication: RHEUMATOID ARTHRITIS
     Dosage: MAINTENANCE DOSING; STRENGTH: 400 MG
     Dates: start: 201203, end: 2013
  2. CIMZIA [Suspect]
     Indication: RHEUMATOID ARTHRITIS
     Dosage: LAST INJECTION DOSE: 08-JUL-2013
     Dates: start: 2013
  3. AMITRIPTYLINE [Concomitant]
  4. ENALAPRIL [Concomitant]
  5. PREDNISONE [Concomitant]
  6. METHOTREXATE [Concomitant]
  7. CYMBALTA [Concomitant]
  8. CELEBREX [Concomitant]
  9. METHADONE [Concomitant]
     Indication: PAIN
  10. GLIMEPIRIDE [Concomitant]

REACTIONS (7)
  - Cellulitis [Recovered/Resolved]
  - Cataract [Unknown]
  - Hyperhidrosis [Recovered/Resolved]
  - Miliaria [Recovered/Resolved]
  - Fatigue [Recovered/Resolved]
  - Somnolence [Recovered/Resolved]
  - Arthropod bite [Unknown]
